FAERS Safety Report 12890769 (Version 1)
Quarter: 2016Q4

REPORT INFORMATION
  Report Type: Spontaneous
  Country: US (occurrence: US)
  Receive Date: 20161025
  Receipt Date: 20161025
  Transmission Date: 20170207
  Serious: Yes (Other)
  Sender: FDA-Public Use
  Company Number: None

PATIENT
  Age: 27 Year
  Sex: Female
  Weight: 105.33 kg

DRUGS (1)
  1. MAKENA [Suspect]
     Active Substance: HYDROXYPROGESTERONE CAPROATE
     Indication: ABORTION SPONTANEOUS
     Route: 028
     Dates: start: 20161014, end: 20161024

REACTIONS (3)
  - Dizziness [None]
  - Fall [None]
  - Syncope [None]

NARRATIVE: CASE EVENT DATE: 20161024
